FAERS Safety Report 7539903-8 (Version None)
Quarter: 2011Q2

REPORT INFORMATION
  Report Type: 
  Country: None (occurrence: None)
  Receive Date: 20110610
  Receipt Date: 20110607
  Transmission Date: 20111010
  Serious: Yes (Hospitalization)
  Sender: FDA-Public Use
  Company Number: FR-BAYER-2011-049075

PATIENT
  Age: 55 Year
  Sex: Male

DRUGS (3)
  1. NEXAVAR [Suspect]
     Dosage: 1/2 DOSES WITHIN 4 DAYS
  2. NEXAVAR [Suspect]
     Dosage: 800 MG, QD
     Route: 048
     Dates: start: 20110105, end: 20110113
  3. NEXAVAR [Suspect]
     Dosage: 800 MG, QD

REACTIONS (2)
  - RASH MORBILLIFORM [None]
  - FACE OEDEMA [None]
